FAERS Safety Report 9690034 (Version 2)
Quarter: 2014Q2

REPORT INFORMATION
  Report Type: Report from Study
  Country: US (occurrence: US)
  Receive Date: 20131115
  Receipt Date: 20140407
  Transmission Date: 20141212
  Serious: Yes (Death, Other)
  Sender: FDA-Public Use
  Company Number: US-ROCHE-1301113

PATIENT
  Sex: 0

DRUGS (5)
  1. CAPECITABINE [Suspect]
     Indication: COLORECTAL CANCER METASTATIC
     Dosage: DAYS 1-14
     Route: 048
  2. BEVACIZUMAB [Suspect]
     Indication: COLORECTAL CANCER METASTATIC
     Dosage: ON DAY1, EVERY 3 WEEKS.
     Route: 065
  3. DASATINIB [Suspect]
     Indication: COLORECTAL CANCER METASTATIC
     Route: 065
  4. DASATINIB [Suspect]
     Route: 065
  5. OXALIPLATIN [Suspect]
     Indication: COLORECTAL CANCER METASTATIC
     Dosage: ON DAY 1
     Route: 065

REACTIONS (16)
  - Gastrointestinal perforation [Fatal]
  - Neutropenia [Unknown]
  - Fatigue [Unknown]
  - Diarrhoea [Unknown]
  - Anaemia [Unknown]
  - Decreased appetite [Unknown]
  - Dehydration [Unknown]
  - Oedema [Unknown]
  - Haemorrhage [Unknown]
  - Hypertension [Unknown]
  - Hyponatraemia [Unknown]
  - Hypophosphataemia [Unknown]
  - Neuropathy peripheral [Unknown]
  - Febrile neutropenia [Unknown]
  - Pleural effusion [Unknown]
  - Proteinuria [Unknown]
